FAERS Safety Report 13581297 (Version 1)
Quarter: 2017Q2

REPORT INFORMATION
  Report Type: Spontaneous
  Country: US (occurrence: US)
  Receive Date: 20170525
  Receipt Date: 20170525
  Transmission Date: 20170830
  Serious: Yes (Other)
  Sender: FDA-Public Use
  Company Number: None

PATIENT
  Age: 47 Year
  Sex: Female
  Weight: 65.25 kg

DRUGS (9)
  1. ORENCIA [Suspect]
     Active Substance: ABATACEPT
     Indication: RHEUMATOID ARTHRITIS
     Dosage: OTHER STRENGTH:MG/ML;QUANTITY:1 INJECTION(S);OTHER FREQUENCY:WEEKLY;?
     Route: 058
     Dates: start: 20160101, end: 20170512
  2. MAGNESIUM [Concomitant]
     Active Substance: MAGNESIUM
  3. CENTRUM SILVER [Concomitant]
     Active Substance: MINERALS\VITAMINS
  4. NOVOLOG [Concomitant]
     Active Substance: INSULIN ASPART
  5. MULTIVITAMIN [Concomitant]
     Active Substance: VITAMINS
  6. SYNTHROID [Concomitant]
     Active Substance: LEVOTHYROXINE SODIUM
  7. FOLIC ACID. [Concomitant]
     Active Substance: FOLIC ACID
  8. METHOTREXATE. [Concomitant]
     Active Substance: METHOTREXATE
  9. VITAMIN D [Concomitant]
     Active Substance: CHOLECALCIFEROL

REACTIONS (2)
  - Tendon pain [None]
  - Joint swelling [None]

NARRATIVE: CASE EVENT DATE: 20170428
